FAERS Safety Report 8470320-2 (Version None)
Quarter: 2012Q2

REPORT INFORMATION
  Report Type: 
  Country: None (occurrence: None)
  Receive Date: 20120627
  Receipt Date: 20120622
  Transmission Date: 20120825
  Serious: No
  Sender: FDA-Public Use
  Company Number: US-PFIZER INC-2012151094

PATIENT
  Age: 74 Year
  Sex: Female
  Weight: 68.934 kg

DRUGS (2)
  1. PREMARIN [Suspect]
     Indication: VAGINAL INFECTION
     Dosage: UNK, THREE TIMES A WEEK
     Route: 067
     Dates: start: 20120426
  2. METOPROLOL [Concomitant]
     Indication: HYPERTENSION
     Dosage: 25 MG, 2X/DAY

REACTIONS (1)
  - ALOPECIA [None]
